FAERS Safety Report 9848463 (Version 1)
Quarter: 2014Q1

REPORT INFORMATION
  Report Type: Spontaneous
  Country: US (occurrence: None)
  Receive Date: 20140122
  Receipt Date: 20140122
  Transmission Date: 20141002
  Serious: Yes (Death)
  Sender: FDA-Public Use
  Company Number: B0959133A

PATIENT
  Age: 20 Year
  Sex: Male

DRUGS (8)
  1. BUPROPION HYDROCHLORIDE [Suspect]
     Route: 048
  2. PARACETAMOL [Suspect]
     Route: 048
  3. SALICYLATE [Suspect]
     Route: 048
  4. CAFFEINE [Suspect]
     Route: 048
  5. LAMOTRIGINE [Suspect]
     Route: 048
  6. ARIPIPRAZOLE [Suspect]
     Route: 048
  7. CLONAZEPAM (FORMULATION UNKNOWN) (CLONAZEPAM) [Suspect]
     Route: 048
  8. ZOLPIDEM (FORMULATION UNKNOWN) (ZOLPIDEM) [Suspect]
     Route: 048

REACTIONS (2)
  - Completed suicide [None]
  - Exposure via ingestion [None]
